FAERS Safety Report 4957413-9 (Version None)
Quarter: 2006Q1

REPORT INFORMATION
  Report Type: 
  Country: None (occurrence: None)
  Receive Date: 20060327
  Receipt Date: 20060314
  Transmission Date: 20060701
  Serious: Yes (Other)
  Sender: FDA-Public Use
  Company Number: 2006BH005538

PATIENT

DRUGS (5)
  1. FENTANYL CITRATE [Suspect]
     Indication: SEDATIVE THERAPY
     Dosage: 1 UG/M**2; ONCE;
  2. MIDAZOLAM [Suspect]
     Indication: SEDATIVE THERAPY
     Dosage: 0.02 MG/M**2; ONCE;
  3. HYPERBARIC BUPIVACAINE [Concomitant]
  4. FENTANYL [Concomitant]
  5. MORPHINE [Concomitant]

REACTIONS (4)
  - CAESAREAN SECTION [None]
  - DRUG EXPOSURE DURING PREGNANCY [None]
  - GRUNTING [None]
  - NEONATAL DISORDER [None]
